FAERS Safety Report 8861260 (Version 1)
Quarter: 2012Q4

REPORT INFORMATION
  Report Type: 
  Country: US (occurrence: US)
  Receive Date: 20121026
  Receipt Date: 20121026
  Transmission Date: 20130627
  Serious: No
  Sender: FDA-Public Use
  Company Number: US-PFIZER INC-2012265366

PATIENT
  Age: 70 Year
  Sex: Male

DRUGS (5)
  1. SUTENT [Suspect]
     Indication: THYROID CANCER
     Dosage: 50 mg, daily for 2 weeks, then off 1 week and repeat
     Dates: start: 20120831
  2. LEVOTHYROXINE [Concomitant]
     Dosage: 125 ug, UNK
  3. HYCODAN [Concomitant]
     Dosage: UNK
  4. CLARITIN [Concomitant]
     Dosage: UNK
  5. TAMSULOSIN HYDROCHLORIDE [Concomitant]
     Dosage: UNK

REACTIONS (5)
  - Off label use [Unknown]
  - Glossodynia [Unknown]
  - Oedema peripheral [Unknown]
  - Joint swelling [Unknown]
  - Constipation [Unknown]
